FAERS Safety Report 25438923 (Version 1)
Quarter: 2025Q2

REPORT INFORMATION
  Report Type: Spontaneous
  Country: US (occurrence: US)
  Receive Date: 20250616
  Receipt Date: 20250616
  Transmission Date: 20250716
  Serious: No
  Sender: KRAMER LABORATORIES
  Company Number: US-KRAMERLABS-2024-US-039305

PATIENT
  Age: 42 Year
  Sex: Female
  Weight: 74.84 kg

DRUGS (4)
  1. NIZORAL ANTI-DANDRUFF KETOCONAZOLE 1 ANTI-DANDRUFF [Suspect]
     Active Substance: KETOCONAZOLE
     Indication: Dandruff
     Route: 061
     Dates: start: 20240716, end: 20240716
  2. UNSPECIFIED INGREDIENT [Concomitant]
     Active Substance: UNSPECIFIED INGREDIENT
  3. unspecified anti-anxiety medication [Concomitant]
  4. VITAMINS [Concomitant]
     Active Substance: VITAMINS

REACTIONS (4)
  - Application site pruritus [Not Recovered/Not Resolved]
  - Alopecia [Recovered/Resolved]
  - Counterfeit product administered [Recovered/Resolved]
  - Suspected counterfeit product [Unknown]

NARRATIVE: CASE EVENT DATE: 20240716
